FAERS Safety Report 16084379 (Version 1)
Quarter: 2019Q1

REPORT INFORMATION
  Report Type: Spontaneous
  Country: PE (occurrence: PE)
  Receive Date: 20190318
  Receipt Date: 20190318
  Transmission Date: 20190418
  Serious: Yes (Other)
  Sender: FDA-Public Use
  Company Number: PE-BAYER-2019-048947

PATIENT
  Age: 79 Year
  Sex: Male

DRUGS (1)
  1. GADOVIST [Suspect]
     Active Substance: GADOBUTROL
     Dosage: 7.5 ML, ONCE

REACTIONS (5)
  - Disorientation [None]
  - Confusional state [Not Recovered/Not Resolved]
  - Salivary hypersecretion [None]
  - Restlessness [None]
  - Speech disorder [None]
